FAERS Safety Report 5922540-6 (Version None)
Quarter: 2008Q4

REPORT INFORMATION
  Report Type: 
  Country: None (occurrence: None)
  Receive Date: 20081017
  Receipt Date: 20081008
  Transmission Date: 20090506
  Serious: Yes (Hospitalization, Other)
  Sender: FDA-Public Use
  Company Number: PHHY2008CA24350

PATIENT
  Sex: Female

DRUGS (2)
  1. ACLASTA [Suspect]
     Indication: OSTEOPOROSIS POSTMENOPAUSAL
     Dosage: UNK
     Dates: start: 20080930
  2. CALCIUM [Concomitant]

REACTIONS (4)
  - CREATININE RENAL CLEARANCE DECREASED [None]
  - PAIN [None]
  - PAIN IN EXTREMITY [None]
  - SYNCOPE [None]
